FAERS Safety Report 8078488-7 (Version None)
Quarter: 2012Q1

REPORT INFORMATION
  Report Type: 
  Country: None (occurrence: None)
  Receive Date: 20120127
  Receipt Date: 20120127
  Transmission Date: 20120608
  Serious: Yes (Life-Threatening, Hospitalization)
  Sender: FDA-Public Use
  Company Number: None

PATIENT
  Age: 50 Year
  Sex: Male
  Weight: 129.4 kg

DRUGS (1)
  1. GILENYA [Suspect]
     Indication: MULTIPLE SCLEROSIS
     Dosage: 0.5MG DAILY BY MOUTH
     Route: 048
     Dates: start: 20110901, end: 20120102

REACTIONS (3)
  - HERPES ZOSTER [None]
  - LYMPHOCYTE COUNT DECREASED [None]
  - CONVULSION [None]
